FAERS Safety Report 16957520 (Version 1)
Quarter: 2019Q4

REPORT INFORMATION
  Report Type: Spontaneous
  Country: VN (occurrence: VN)
  Receive Date: 20191024
  Receipt Date: 20191024
  Transmission Date: 20200122
  Serious: Yes (Hospitalization)
  Sender: FDA-Public Use
  Company Number: VN-ASTRAZENECA-2019SF31404

PATIENT
  Age: 55 Year
  Sex: Male

DRUGS (5)
  1. TICAGRELOR. [Suspect]
     Active Substance: TICAGRELOR
     Indication: ACUTE CORONARY SYNDROME
     Dosage: 90.0MG UNKNOWN
     Route: 048
     Dates: start: 20190826, end: 20190908
  2. CRESTOR [Concomitant]
     Active Substance: ROSUVASTATIN CALCIUM
     Indication: ACUTE CORONARY SYNDROME
     Dosage: 20.0UG UNKNOWN
     Route: 048
     Dates: start: 20190828
  3. LOVENOX [Concomitant]
     Active Substance: ENOXAPARIN SODIUM
     Indication: ACUTE CORONARY SYNDROME
     Dosage: 60MG/0.6ML, 0.6 G
     Route: 058
     Dates: start: 20190826
  4. ASPIRIN. [Concomitant]
     Active Substance: ASPIRIN
     Indication: ACUTE CORONARY SYNDROME
     Dosage: 75.0UG UNKNOWN
     Route: 048
     Dates: start: 20190828, end: 20190908
  5. DIOVAN [Concomitant]
     Active Substance: VALSARTAN
     Indication: HYPERTENSION
     Route: 048
     Dates: start: 20190828

REACTIONS (2)
  - Cerebral haemorrhage [Recovered/Resolved]
  - Hemiplegia [Recovered/Resolved]

NARRATIVE: CASE EVENT DATE: 20190909
